FAERS Safety Report 10238590 (Version 1)
Quarter: 2014Q2

REPORT INFORMATION
  Report Type: Spontaneous
  Country: JP (occurrence: JP)
  Receive Date: 20140616
  Receipt Date: 20140616
  Transmission Date: 20141212
  Serious: Yes (Congenital Anomaly)
  Sender: FDA-Public Use
  Company Number: JP-MYLANLABS-2014S1013735

PATIENT
  Sex: Male

DRUGS (6)
  1. ASPIRIN [Suspect]
     Indication: SYSTEMIC LUPUS ERYTHEMATOSUS
     Route: 064
  2. ASPIRIN [Suspect]
     Indication: ANTIPHOSPHOLIPID SYNDROME
     Route: 064
  3. PREDNISOLONE [Suspect]
     Indication: SYSTEMIC LUPUS ERYTHEMATOSUS
     Route: 064
  4. PREDNISOLONE [Suspect]
     Indication: ANTIPHOSPHOLIPID SYNDROME
     Route: 064
  5. UNFRACTIONATED HEPARIN [Concomitant]
     Indication: PRODUCT USED FOR UNKNOWN INDICATION
     Route: 064
  6. IMMUNOGLOBULIN /07494701/ [Concomitant]
     Indication: PRODUCT USED FOR UNKNOWN INDICATION
     Route: 064

REACTIONS (7)
  - Foetal exposure during pregnancy [Unknown]
  - Foetal growth restriction [Unknown]
  - Small for dates baby [Unknown]
  - Gastrointestinal malformation [Unknown]
  - Pancytopenia [Unknown]
  - Coagulopathy [Unknown]
  - Meconium abnormal [Unknown]
